FAERS Safety Report 15809605 (Version 1)
Quarter: 2019Q1

REPORT INFORMATION
  Report Type: Spontaneous
  Country: US (occurrence: US)
  Receive Date: 20190111
  Receipt Date: 20190111
  Transmission Date: 20190417
  Serious: Yes (Death, Other)
  Sender: FDA-Public Use
  Company Number: US-REGENERON PHARMACEUTICALS, INC.-2018-44291

PATIENT

DRUGS (4)
  1. EYLEA [Suspect]
     Active Substance: AFLIBERCEPT
     Dosage: 2 MG, UNK, RIGHT EYE, LAST DOSE
     Route: 031
     Dates: start: 20171031, end: 20171031
  2. EYLEA [Suspect]
     Active Substance: AFLIBERCEPT
     Dosage: 2 MG, UNK, LEFT EYE, LAST DOSE
     Route: 031
     Dates: start: 20171219, end: 20171219
  3. EYLEA [Suspect]
     Active Substance: AFLIBERCEPT
     Dosage: 2 MG, UNK, LEFT EYE
     Route: 031
     Dates: start: 20170526
  4. EYLEA [Suspect]
     Active Substance: AFLIBERCEPT
     Indication: NEOVASCULAR AGE-RELATED MACULAR DEGENERATION
     Dosage: 2 MG, UNK, RIGHT EYE
     Route: 031
     Dates: start: 20120928

REACTIONS (2)
  - Death [Fatal]
  - Back pain [Recovered/Resolved]

NARRATIVE: CASE EVENT DATE: 20181016
